FAERS Safety Report 10546244 (Version 1)
Quarter: 2014Q4

REPORT INFORMATION
  Report Type: Report from Study
  Country: US (occurrence: US)
  Receive Date: 20141027
  Receipt Date: 20141027
  Transmission Date: 20150529
  Serious: No
  Sender: FDA-Public Use
  Company Number: US-ABBVIE-14P-163-1215834-00

PATIENT
  Sex: Female
  Weight: 50.39 kg

DRUGS (4)
  1. LUPRON DEPOT [Suspect]
     Active Substance: LEUPROLIDE ACETATE
     Indication: PELVIC PAIN
  2. LISINOPRIL. [Concomitant]
     Active Substance: LISINOPRIL
     Indication: HYPERTENSION
  3. HYDROCHLOROTHIAZIDE. [Concomitant]
     Active Substance: HYDROCHLOROTHIAZIDE
     Indication: HYPERTENSION
  4. LUPRON DEPOT [Suspect]
     Active Substance: LEUPROLIDE ACETATE
     Indication: DYSPAREUNIA
     Route: 030
     Dates: start: 20140227

REACTIONS (6)
  - Weight decreased [Unknown]
  - Headache [Unknown]
  - Off label use [Unknown]
  - Unevaluable event [Unknown]
  - Anxiety [Unknown]
  - Decreased appetite [Unknown]
